FAERS Safety Report 9009225 (Version 1)
Quarter: 2013Q1

REPORT INFORMATION
  Report Type: Spontaneous
  Country: US (occurrence: US)
  Receive Date: 20130111
  Receipt Date: 20130111
  Transmission Date: 20140127
  Serious: Yes (Other)
  Sender: FDA-Public Use
  Company Number: US-009507513-1301USA001455

PATIENT
  Age: 4 Year
  Sex: Male

DRUGS (5)
  1. MONTELUKAST SODIUM [Suspect]
     Indication: HYPERSENSITIVITY
  2. RANITIDINE [Suspect]
  3. ATARAX (HYDROXYZINE HYDROCHLORIDE) [Suspect]
  4. ZYRTEC [Suspect]
     Route: 048
  5. LEVETIRACETAM [Concomitant]
     Indication: ANGIOEDEMA

REACTIONS (4)
  - Hypersensitivity [Unknown]
  - Angioedema [Unknown]
  - Flushing [Unknown]
  - Drug ineffective [Unknown]
